FAERS Safety Report 6992350-X (Version None)
Quarter: 2010Q3

REPORT INFORMATION
  Report Type: 
  Country: None (occurrence: None)
  Receive Date: 20100917
  Receipt Date: 20100909
  Transmission Date: 20110219
  Serious: Yes (Other)
  Sender: FDA-Public Use
  Company Number: US-BAYER-201033453NA

PATIENT
  Sex: Female

DRUGS (2)
  1. AVELOX [Suspect]
     Indication: INFECTION
     Route: 048
     Dates: start: 19980101, end: 20000101
  2. VECTRIN [Concomitant]

REACTIONS (1)
  - URTICARIA [None]
